FAERS Safety Report 9433879 (Version 4)
Quarter: 2013Q4

REPORT INFORMATION
  Report Type: Report from Study
  Country: CA (occurrence: CA)
  Receive Date: 20130801
  Receipt Date: 20131217
  Transmission Date: 20140711
  Serious: Yes (Hospitalization)
  Sender: FDA-Public Use
  Company Number: CA-ROCHE-1146870

PATIENT
  Age: 62 Year
  Sex: Female
  Weight: 65 kg

DRUGS (23)
  1. ACTEMRA [Suspect]
     Indication: RHEUMATOID ARTHRITIS
     Route: 042
     Dates: start: 20120730
  2. ACTEMRA [Suspect]
     Route: 042
     Dates: start: 20121022
  3. ACTEMRA [Suspect]
     Route: 042
     Dates: start: 20121217
  4. ACTEMRA [Suspect]
     Route: 042
     Dates: start: 20130408
  5. ACTEMRA [Suspect]
     Route: 042
     Dates: start: 20130506
  6. ACTEMRA [Suspect]
     Route: 042
     Dates: start: 20130603
  7. ACTEMRA [Suspect]
     Route: 042
     Dates: start: 20130708
  8. CRESTOR [Concomitant]
  9. METHOTREXATE [Concomitant]
     Dosage: MONDAY
     Route: 048
  10. PLAQUENIL [Concomitant]
  11. MOBICOX [Concomitant]
  12. PREDNISONE [Concomitant]
     Route: 048
  13. PANTOLOC [Concomitant]
     Route: 048
  14. IMOVANE [Concomitant]
  15. RISPERDAL [Concomitant]
     Route: 048
  16. MELOXICAM [Concomitant]
     Dosage: 7.5-15 MG
     Route: 048
  17. EURO-FOLIC [Concomitant]
     Dosage: TUESDAY AND SATURDAY
     Route: 048
  18. NOVO-RISEDRONATE [Concomitant]
     Dosage: WEDNESDAY
     Route: 065
  19. PRO-HYDROXYQUINE [Concomitant]
     Route: 048
  20. ZOPICLONE [Concomitant]
     Route: 048
  21. ATIVAN [Concomitant]
     Route: 048
  22. GENACOL [Concomitant]
     Route: 048
  23. PANTOPRAZOLE [Concomitant]
     Route: 048

REACTIONS (6)
  - Intestinal obstruction [Recovering/Resolving]
  - White blood cell count decreased [Recovered/Resolved]
  - Blood pressure increased [Recovered/Resolved]
  - Asthenia [Recovered/Resolved]
  - Contusion [Recovered/Resolved]
  - Weight decreased [Recovered/Resolved]
